FAERS Safety Report 6121874-2 (Version None)
Quarter: 2009Q1

REPORT INFORMATION
  Report Type: 
  Country: None (occurrence: None)
  Receive Date: 20090317
  Receipt Date: 20090304
  Transmission Date: 20090719
  Serious: Yes (Life-Threatening, Disabling, Other)
  Sender: FDA-Public Use
  Company Number: JP-PFIZER INC-2008099117

PATIENT

DRUGS (19)
  1. AMLODIPINE [Interacting]
     Dosage: UNK
  2. SELECTOL [Interacting]
     Dosage: UNK
     Dates: start: 20080401
  3. PYRAZINAMIDE [Suspect]
     Indication: DISSEMINATED TUBERCULOSIS
     Dosage: UNK
     Dates: start: 20070201, end: 20070501
  4. RIFADIN [Interacting]
     Indication: DISSEMINATED TUBERCULOSIS
     Dates: start: 20070201, end: 20070501
  5. RIFADIN [Interacting]
     Dosage: UNK
     Dates: start: 20070701
  6. ISCOTIN [Interacting]
     Indication: DISSEMINATED TUBERCULOSIS
     Dosage: UNK
     Dates: start: 20070201, end: 20070501
  7. ISCOTIN [Interacting]
     Dates: start: 20070701
  8. ACECOL [Interacting]
     Indication: HYPERTENSION
     Dosage: UNK
     Dates: start: 20080201
  9. ACECOL [Interacting]
     Dosage: UNK
     Dates: start: 20080201
  10. ARTIST [Interacting]
     Indication: HYPERTENSION
     Dosage: UNK
     Dates: start: 20080201
  11. ARTIST [Interacting]
     Dosage: UNK
  12. ETHAMBUTOL HCL [Suspect]
     Indication: DISSEMINATED TUBERCULOSIS
     Dosage: UNK
     Dates: start: 20070201, end: 20070501
  13. ETHAMBUTOL HCL [Suspect]
     Dosage: UNK
     Dates: start: 20070701, end: 20071001
  14. RENIVACE [Suspect]
  15. LONGES [Suspect]
  16. STREPTOMYCIN [Concomitant]
     Indication: DISSEMINATED TUBERCULOSIS
     Dates: start: 20070501
  17. DIOVANE [Concomitant]
  18. ALDOMET [Concomitant]
  19. CARDENALIN [Concomitant]

REACTIONS (5)
  - BLOOD PRESSURE INADEQUATELY CONTROLLED [None]
  - CEREBELLAR HAEMORRHAGE [None]
  - DRUG INTERACTION [None]
  - HEPATIC FAILURE [None]
  - HYPERTENSIVE ENCEPHALOPATHY [None]
